FAERS Safety Report 7985501-1 (Version None)
Quarter: 2011Q4

REPORT INFORMATION
  Report Type: 
  Country: None (occurrence: None)
  Receive Date: 20111216
  Receipt Date: 20111213
  Transmission Date: 20120403
  Serious: Yes (Death)
  Sender: FDA-Public Use
  Company Number: SE-BIOMARINP-002096

PATIENT
  Sex: Female
  Weight: 14.5 kg

DRUGS (8)
  1. SOLU-CORTEF [Concomitant]
  2. ATROPINE [Concomitant]
  3. ACETAMINOPHEN [Concomitant]
  4. OXYGEN [Concomitant]
  5. EPINEPHRINE [Concomitant]
  6. MORPHINE [Concomitant]
  7. TRIBONAT [Concomitant]
  8. NAGLAZYME [Suspect]
     Indication: MUCOPOLYSACCHARIDOSIS VI
     Route: 042
     Dates: start: 20080801

REACTIONS (2)
  - PRODUCT QUALITY ISSUE [None]
  - ANAPHYLACTIC SHOCK [None]
